FAERS Safety Report 4975201-4 (Version None)
Quarter: 2006Q2

REPORT INFORMATION
  Report Type: 
  Country: None (occurrence: None)
  Receive Date: 20060418
  Receipt Date: 20060406
  Transmission Date: 20061013
  Serious: Yes (Other)
  Sender: FDA-Public Use
  Company Number: SE-JNJFOC-20060401930

PATIENT
  Age: 38 Year
  Sex: Female

DRUGS (4)
  1. REMICADE [Suspect]
     Route: 042
  2. REMICADE [Suspect]
     Indication: INFLAMMATORY BOWEL DISEASE
     Route: 042
  3. IMUREL [Concomitant]
     Route: 065
  4. PENTASA [Concomitant]
     Route: 065

REACTIONS (1)
  - DERMATITIS BULLOUS [None]
